FAERS Safety Report 18404915 (Version 1)
Quarter: 2020Q4

REPORT INFORMATION
  Report Type: Spontaneous
  Country: US (occurrence: US)
  Receive Date: 20201020
  Receipt Date: 20201020
  Transmission Date: 20210114
  Serious: Yes (Hospitalization, Other)
  Sender: FDA-Public Use
  Company Number: None

PATIENT
  Sex: Female
  Weight: 50.4 kg

DRUGS (1)
  1. DICLOFENAC [Suspect]
     Active Substance: DICLOFENAC
     Indication: SCIATICA

REACTIONS (6)
  - Dyspnoea [None]
  - Blood pressure increased [None]
  - Pain in extremity [None]
  - Headache [None]
  - Inflammation [None]
  - Palpitations [None]
